FAERS Safety Report 8520828 (Version 14)
Quarter: 2012Q4

REPORT INFORMATION
  Report Type: 
  Country: US (occurrence: US)
  Receive Date: 20120419
  Receipt Date: 20121224
  Transmission Date: 20130627
  Serious: Yes (Hospitalization)
  Sender: FDA-Public Use
  Company Number: US-ASTRAZENECA-2011SE41552

PATIENT
  Age: 59 Year
  Sex: Female

DRUGS (32)
  1. NEXIUM [Suspect]
     Indication: GASTROOESOPHAGEAL REFLUX DISEASE
     Route: 048
     Dates: start: 2006
  2. NEXIUM [Suspect]
     Indication: GASTROOESOPHAGEAL REFLUX DISEASE
     Route: 048
     Dates: start: 20090324
  3. CLONIDINE [Concomitant]
     Indication: HYPERTENSION
     Dates: start: 20090324
  4. ALPROLAZAM [Concomitant]
     Indication: ANXIETY
     Dates: start: 20090324
  5. PROTONIX [Concomitant]
  6. TUMS [Concomitant]
  7. FUROSEMIDE [Concomitant]
     Dates: start: 20090324
  8. SPIRONOLACTONE [Concomitant]
     Dates: start: 20090324
  9. ROZEREM [Concomitant]
     Dates: start: 20090324
  10. COUMADIN [Concomitant]
     Dates: start: 20090324
  11. LEVOTHYROXINE/LEVOXYL [Concomitant]
     Indication: HYPOTHYROIDISM
     Dates: start: 20090324
  12. DARVOCET N [Concomitant]
     Dosage: 100 TO 650 MG
     Dates: start: 20090324
  13. AMLODIPIN [Concomitant]
     Dates: start: 20090324
  14. CRESTOR [Concomitant]
     Indication: HYPERLIPIDAEMIA
     Dates: start: 20090324
  15. CELEBREX [Concomitant]
     Dates: start: 20090324
  16. FLEXERIL [Concomitant]
     Dates: start: 20090324
  17. LORTAB [Concomitant]
     Indication: PAIN
     Dosage: 5 TO 50 MG ONE TIME ONLY
     Dates: start: 20090324
  18. ACETYLCYSTEINE [Concomitant]
     Dates: start: 20101224
  19. ZOSYN [Concomitant]
     Dates: start: 20101224
  20. PROPOFOL [Concomitant]
     Dates: start: 20101224
  21. VANCOMYCIN [Concomitant]
     Dates: start: 20101224
  22. ASPIRIN [Concomitant]
     Dates: start: 20101224
  23. DIPHENHYDRAMINE [Concomitant]
     Dates: start: 20101224
  24. LOVENOX [Concomitant]
     Dates: start: 20090515
  25. ATROVENT [Concomitant]
     Dates: start: 20101224
  26. MAGNESIUM [Concomitant]
     Dates: start: 20101224
  27. ZOFRAN [Concomitant]
     Dates: start: 20101224
  28. TAMIFLU [Concomitant]
     Dates: start: 20101224
  29. AMBIEN [Concomitant]
     Dates: start: 20101224
  30. REGLAN [Concomitant]
     Indication: GASTROOESOPHAGEAL REFLUX DISEASE
     Dates: start: 20090515
  31. SOMA [Concomitant]
     Indication: OSTEOARTHRITIS
     Dates: start: 20090515
  32. ZOLOFT [Concomitant]
     Indication: DEPRESSION
     Dates: start: 20090515

REACTIONS (12)
  - Upper limb fracture [Unknown]
  - Humerus fracture [Unknown]
  - Cervical vertebral fracture [Unknown]
  - Osteoporosis [Unknown]
  - Tibia fracture [Unknown]
  - Anxiety [Unknown]
  - Nightmare [Unknown]
  - Fall [Unknown]
  - Compression fracture [Unknown]
  - Fibula fracture [Unknown]
  - Arthralgia [Unknown]
  - Depression [Unknown]
